FAERS Safety Report 6588831-3 (Version None)
Quarter: 2010Q1

REPORT INFORMATION
  Report Type: 
  Country: None (occurrence: None)
  Receive Date: 20100218
  Receipt Date: 20100211
  Transmission Date: 20100710
  Serious: Yes (Congenital Anomaly)
  Sender: FDA-Public Use
  Company Number: A0842211A

PATIENT
  Sex: Female
  Weight: 3.2 kg

DRUGS (22)
  1. RETROVIR [Suspect]
     Indication: ANTIRETROVIRAL THERAPY
     Dosage: 2MGKH PER DAY
  2. RETROVIR [Suspect]
     Dosage: 1MGKH PER DAY
  3. EFAVIRENZ [Suspect]
     Indication: ANTIRETROVIRAL THERAPY
     Dosage: 600MGD PER DAY
  4. TRUVADA [Suspect]
     Indication: ANTIRETROVIRAL THERAPY
  5. EFAVIRENZ [Suspect]
     Dosage: 600MGD PER DAY
  6. EMTRIVA [Suspect]
     Indication: ANTIRETROVIRAL THERAPY
     Dosage: 200MGD PER DAY
  7. EMTRIVA [Suspect]
     Dosage: 200MGD PER DAY
  8. VIREAD [Suspect]
     Indication: ANTIRETROVIRAL THERAPY
     Dosage: 300MGD PER DAY
  9. AMPHETAMINES [Suspect]
  10. BENZODIAZEPINES [Suspect]
  11. DIAZEPAM [Suspect]
  12. DIAZEPAM [Suspect]
  13. OXAZEPAM [Suspect]
  14. NITRAZEPAM [Suspect]
  15. MIRTAZAPINE [Suspect]
  16. ETHANOL [Suspect]
  17. CODEINE SULFATE [Suspect]
  18. PARACETAMOL [Suspect]
  19. OLANZAPINE [Suspect]
  20. ANTIDEPRESSANT [Suspect]
  21. ALCOHOL [Suspect]
  22. VIREAD [Suspect]
     Dosage: 300MGD PER DAY

REACTIONS (3)
  - CARDIAC DISORDER [None]
  - CONGENITAL TRICUSPID VALVE ATRESIA [None]
  - DRUG EXPOSURE DURING PREGNANCY [None]
